FAERS Safety Report 25473327 (Version 1)
Quarter: 2025Q2

REPORT INFORMATION
  Report Type: Report from Study
  Country: FR (occurrence: FR)
  Receive Date: 20250624
  Receipt Date: 20250624
  Transmission Date: 20250716
  Serious: Yes (Other)
  Sender: PFIZER
  Company Number: FR-GSK-FR2025GSK039208

PATIENT
  Age: 75 Year
  Sex: Female

DRUGS (4)
  1. CARBOPLATIN [Suspect]
     Active Substance: CARBOPLATIN
     Indication: Endometrial cancer
     Dates: start: 20241008, end: 20250115
  2. PACLITAXEL [Suspect]
     Active Substance: PACLITAXEL
     Indication: Endometrial cancer
     Dates: start: 20241008
  3. PACLITAXEL [Suspect]
     Active Substance: PACLITAXEL
     Dates: start: 20241210, end: 20250115
  4. DOSTARLIMAB [Suspect]
     Active Substance: DOSTARLIMAB
     Indication: Endometrial cancer
     Dosage: 500 MG, EVERY 3 WEEKS
     Route: 042
     Dates: start: 20241008, end: 20250115

REACTIONS (1)
  - Proctitis ulcerative [Unknown]

NARRATIVE: CASE EVENT DATE: 20250114
